FAERS Safety Report 8971135 (Version 3)
Quarter: 2013Q1

REPORT INFORMATION
  Report Type: Spontaneous
  Country: US (occurrence: US)
  Receive Date: 20121218
  Receipt Date: 20130313
  Transmission Date: 20140127
  Serious: Yes (Death)
  Sender: FDA-Public Use
  Company Number: US-PFIZER INC-2012317952

PATIENT
  Age: 48 Year
  Sex: Female
  Weight: 90.72 kg

DRUGS (11)
  1. MOTRIN [Suspect]
     Indication: PAIN
     Dosage: UNK
     Route: 065
  2. MOTRIN [Suspect]
     Indication: SINUSITIS
  3. DIAZEPAM [Suspect]
     Indication: PRODUCT USED FOR UNKNOWN INDICATION
     Dosage: 5 MG, UNK
     Route: 065
  4. GABAPENTIN [Suspect]
     Indication: PRODUCT USED FOR UNKNOWN INDICATION
     Dosage: 300 MG, UNK
     Route: 065
  5. NAPROXEN SODIUM [Suspect]
     Indication: PRODUCT USED FOR UNKNOWN INDICATION
     Dosage: UNK
     Route: 065
  6. CELEXA [Suspect]
     Indication: PRODUCT USED FOR UNKNOWN INDICATION
     Dosage: 40 MG, UNK
     Route: 065
  7. CELEXA [Suspect]
     Dosage: 20 MG, 1X/DAY
     Route: 065
  8. ROXICODONE [Suspect]
     Indication: FIBROMYALGIA
     Dosage: 15 MG EVERY 4 HOURS AS NEEDED
     Route: 048
  9. DURAGESIC [Suspect]
     Indication: FIBROMYALGIA
     Dosage: 50 MCG EVERY THREE DAYS
     Route: 062
  10. FLEXERIL [Suspect]
     Indication: PRODUCT USED FOR UNKNOWN INDICATION
     Dosage: 10 MG, UNK
     Route: 065
  11. CAFFEINE [Suspect]
     Indication: PRODUCT USED FOR UNKNOWN INDICATION
     Dosage: UNK
     Route: 065

REACTIONS (1)
  - Overdose [Fatal]
